FAERS Safety Report 8440785-0 (Version None)
Quarter: 2012Q2

REPORT INFORMATION
  Report Type: 
  Country: None (occurrence: None)
  Receive Date: 20120615
  Receipt Date: 20120607
  Transmission Date: 20120825
  Serious: Yes (Hospitalization)
  Sender: FDA-Public Use
  Company Number: US-BAYER-2012-056313

PATIENT
  Age: 24 Year
  Sex: Female

DRUGS (3)
  1. MULTIPLE VITAMINS [Concomitant]
  2. DROSPIRENONE AND ETHINYL ESTRADIOL [Suspect]
  3. XANAX [Concomitant]
     Dosage: 0.25 MG, PRN

REACTIONS (1)
  - PULMONARY EMBOLISM [None]
